FAERS Safety Report 8258300-3 (Version None)
Quarter: 2012Q2

REPORT INFORMATION
  Report Type: 
  Country: None (occurrence: None)
  Receive Date: 20120404
  Receipt Date: 20120323
  Transmission Date: 20120825
  Serious: Yes (Hospitalization)
  Sender: FDA-Public Use
  Company Number: PHEH2011US012978

PATIENT
  Sex: Female
  Weight: 83 kg

DRUGS (4)
  1. EXJADE [Suspect]
     Indication: IRON OVERLOAD
     Dosage: 1500 MG, QD
     Route: 048
     Dates: start: 20110201
  2. EXJADE [Suspect]
     Dosage: 1500 MG, 3 DAYS A WEEK
     Route: 048
  3. EXJADE [Suspect]
     Dosage: 1500 MG, 3 DAYS A WEEK
     Route: 048
     Dates: start: 20110701, end: 20110901
  4. EXJADE [Suspect]
     Dosage: 1500 MG, 3 DAYS A WEEK
     Route: 048
     Dates: start: 20110201, end: 20110502

REACTIONS (4)
  - NAUSEA [None]
  - MATERNAL EXPOSURE DURING PREGNANCY [None]
  - VOMITING [None]
  - PNEUMONIA [None]
